FAERS Safety Report 6210196-7 (Version None)
Quarter: 2009Q2

REPORT INFORMATION
  Report Type: 
  Country: None (occurrence: None)
  Receive Date: 20090529
  Receipt Date: 20090529
  Transmission Date: 20091009
  Serious: Yes (Life-Threatening, Hospitalization, Other)
  Sender: FDA-Public Use
  Company Number: None

PATIENT
  Age: 66 Year
  Sex: Female

DRUGS (1)
  1. LOVENOX [Suspect]
     Dosage: 95 MG SQ Q 12 HRS
     Route: 058
     Dates: start: 20081227, end: 20090103

REACTIONS (2)
  - HAEMORRHAGE [None]
  - MUSCLE HAEMORRHAGE [None]
